FAERS Safety Report 6678321-1 (Version None)
Quarter: 2010Q2

REPORT INFORMATION
  Report Type: 
  Country: None (occurrence: None)
  Receive Date: 20100413
  Receipt Date: 20100401
  Transmission Date: 20101027
  Serious: Yes (Hospitalization)
  Sender: FDA-Public Use
  Company Number: US-BIOGENIDEC-2010BI009353

PATIENT
  Age: 32 Year
  Sex: Female

DRUGS (4)
  1. TYSABRI [Suspect]
     Indication: MULTIPLE SCLEROSIS
     Route: 042
     Dates: start: 20091001
  2. VITAMIN D [Concomitant]
     Route: 048
  3. PAXIL [Concomitant]
     Route: 048
  4. PROTON PUMP INHIBITORS (NOS) [Concomitant]

REACTIONS (3)
  - BRONCHIAL HYPERREACTIVITY [None]
  - DIARRHOEA [None]
  - LEUKOCYTOSIS [None]
